FAERS Safety Report 21592521 (Version 1)
Quarter: 2022Q4

REPORT INFORMATION
  Report Type: Spontaneous
  Country: US (occurrence: None)
  Receive Date: 20221113
  Receipt Date: 20221113
  Transmission Date: 20230113
  Serious: No
  Sender: FDA-Public Use
  Company Number: None

PATIENT
  Age: 64 Year
  Sex: Female
  Weight: 87.4 kg

DRUGS (6)
  1. BRAFTOVI [Suspect]
     Active Substance: ENCORAFENIB
     Indication: Colon cancer
     Dosage: FREQUENCY : DAILY;?
     Route: 048
     Dates: start: 20220604, end: 202210
  2. ASPIRIN LOW DOSE [Concomitant]
  3. MELATONIN [Concomitant]
     Active Substance: MELATONIN
  4. ONDANSETRON [Concomitant]
  5. POTASSIUM CHLORIDE ER [Concomitant]
  6. PROCHLORPERAZINE [Concomitant]

REACTIONS (1)
  - Hospice care [None]
